FAERS Safety Report 14496376 (Version 3)
Quarter: 2018Q3

REPORT INFORMATION
  Report Type: Spontaneous
  Country: FR (occurrence: FR)
  Receive Date: 20180207
  Receipt Date: 20180907
  Transmission Date: 20181010
  Serious: Yes (Death, Other)
  Sender: FDA-Public Use
  Company Number: FR-AUROBINDO-AUR-APL-2015-08677

PATIENT
  Age: 0 Day
  Sex: Female
  Weight: 2.75 kg

DRUGS (37)
  1. ACETYLCYSTEINE BIOGARAN [Suspect]
     Active Substance: ACETYLCYSTEINE
     Indication: BRONCHITIS
     Dosage: MATERNAL DOSE: UNKNOWN) ()
     Route: 064
     Dates: start: 20140825
  2. CARBOCISTEINE BIOGARAN [Suspect]
     Active Substance: CARBOCYSTEINE
     Indication: FOETAL EXPOSURE DURING PREGNANCY
  3. KETOPROFENE MYLAN [Suspect]
     Active Substance: KETOPROFEN
     Indication: FOETAL EXPOSURE DURING PREGNANCY
     Dosage: (MATERNAL DOSE: UNKNOWN) ()
     Route: 064
  4. KLIPAL CODEINE [Suspect]
     Active Substance: ACETAMINOPHEN\CODEINE PHOSPHATE
     Indication: FOETAL EXPOSURE DURING PREGNANCY
  5. SPASFON LYOC [Suspect]
     Active Substance: PHLOROGLUCINOL
     Indication: DYSPEPSIA
     Dosage: (MATERNAL DOSE: UNKNOWN) ()
     Route: 064
     Dates: start: 201406, end: 201407
  6. PIVALONE                           /00803802/ [Suspect]
     Active Substance: TIXOCORTOL PIVALATE
     Indication: RHINITIS
     Dosage: UNK
     Route: 064
     Dates: start: 20141212
  7. PIVALONE                           /00803802/ [Suspect]
     Active Substance: TIXOCORTOL PIVALATE
     Indication: FOETAL EXPOSURE DURING PREGNANCY
  8. SERETIDE [Suspect]
     Active Substance: FLUTICASONE PROPIONATE\SALMETEROL XINAFOATE
     Indication: ASTHMA
     Dosage: UNK
     Route: 064
     Dates: start: 20140825
  9. PARACETAMOL ARROW [Concomitant]
     Active Substance: ACETAMINOPHEN
     Indication: PRODUCT USED FOR UNKNOWN INDICATION
     Dosage: UNK
     Route: 065
     Dates: start: 201402
  10. VOGALENE [Suspect]
     Active Substance: METOPIMAZINE
     Indication: FOETAL EXPOSURE DURING PREGNANCY
     Dosage: (MATERNAL DOSE: UNKNOWN) ()
     Route: 064
     Dates: start: 201406, end: 201409
  11. CARBOCISTEINE BIOGARAN [Suspect]
     Active Substance: CARBOCYSTEINE
     Indication: BRONCHITIS
     Dosage: MATERNAL DOSE: UNKNOWN) 5 POUR CENT ()
     Route: 064
     Dates: start: 20141212, end: 20141216
  12. MACROGOL BIOGARAN [Suspect]
     Active Substance: POLYETHYLENE GLYCOLS
     Indication: FOETAL EXPOSURE DURING PREGNANCY
     Dosage: MATERNAL DOSE: UNKNOWN) ()
     Route: 064
     Dates: start: 201406
  13. ANAFRANIL [Suspect]
     Active Substance: CLOMIPRAMINE HYDROCHLORIDE
     Indication: FOETAL EXPOSURE DURING PREGNANCY
  14. KLIPAL CODEINE [Suspect]
     Active Substance: ACETAMINOPHEN\CODEINE PHOSPHATE
     Indication: SPINAL PAIN
     Dosage: (MATERNAL DOSE: UNKNOWN) ()
     Route: 064
     Dates: start: 20140203, end: 20150104
  15. UVESTEROL D [Suspect]
     Active Substance: ERGOCALCIFEROL
     Indication: PROPHYLAXIS
     Dosage: MATERNAL DOSE: 1500 U/I ()
     Route: 064
  16. UVESTEROL D [Suspect]
     Active Substance: ERGOCALCIFEROL
     Dosage: UNK
     Route: 048
  17. VOGALENE [Suspect]
     Active Substance: METOPIMAZINE
     Dosage: (MATERNAL DOSE: UNKNOWN) ()
     Route: 064
     Dates: start: 20140920, end: 201709
  18. ACETYLCYSTEINE BIOGARAN [Suspect]
     Active Substance: ACETYLCYSTEINE
     Indication: FOETAL EXPOSURE DURING PREGNANCY
  19. IMODIUM [Suspect]
     Active Substance: LOPERAMIDE HYDROCHLORIDE
     Indication: FOETAL EXPOSURE DURING PREGNANCY
  20. MACROGOL BIOGARAN [Suspect]
     Active Substance: POLYETHYLENE GLYCOLS
     Dosage: MATERNAL DOSE: UNKNOWN) ()
     Route: 064
     Dates: start: 20140716, end: 201409
  21. PIVALONE                           /00803802/ [Suspect]
     Active Substance: TIXOCORTOL PIVALATE
     Indication: RHINITIS
     Dosage: UNK
     Route: 064
     Dates: start: 20141212
  22. SPASFON LYOC [Suspect]
     Active Substance: PHLOROGLUCINOL
     Indication: FOETAL EXPOSURE DURING PREGNANCY
  23. SERETIDE [Suspect]
     Active Substance: FLUTICASONE PROPIONATE\SALMETEROL XINAFOATE
     Indication: FOETAL EXPOSURE DURING PREGNANCY
  24. KETOPROFEN. [Suspect]
     Active Substance: KETOPROFEN
     Indication: SPINAL PAIN
     Dosage: 200 MG, DAILY
     Route: 064
     Dates: start: 201401, end: 201404
  25. UVESTEROL D [Suspect]
     Active Substance: ERGOCALCIFEROL
     Indication: FOETAL EXPOSURE DURING PREGNANCY
     Dosage: 1500 U/L, UNK ()
     Route: 064
  26. AMOXICILLINE ALMUS [Suspect]
     Active Substance: AMOXICILLIN
     Indication: ASTHMA
     Dosage: UNK
     Route: 064
     Dates: start: 20140827
  27. OMEPRAZOLE. [Suspect]
     Active Substance: OMEPRAZOLE
     Indication: FOETAL EXPOSURE DURING PREGNANCY
  28. BI?PROFENID [Suspect]
     Active Substance: KETOPROFEN
     Indication: FOETAL EXPOSURE DURING PREGNANCY
     Dosage: (MATERNAL DOSE: UNKNOWN) ()
     Route: 064
  29. IMODIUM [Suspect]
     Active Substance: LOPERAMIDE HYDROCHLORIDE
     Indication: DIARRHOEA
     Dosage: MATERNAL DOSE: UNKNOWN) FOR 5 DAYS ()
     Route: 064
     Dates: start: 20141212
  30. MACROGOL BIOGARAN [Suspect]
     Active Substance: POLYETHYLENE GLYCOLS
     Indication: CONSTIPATION
     Dosage: UNK
     Route: 064
     Dates: start: 20140716
  31. NECYRANE [Suspect]
     Active Substance: RITIOMETAN
     Indication: FOETAL EXPOSURE DURING PREGNANCY
  32. VOGALENE [Suspect]
     Active Substance: METOPIMAZINE
     Indication: NAUSEA
     Dosage: UNK
     Route: 064
     Dates: start: 20140920
  33. BROMAZEPAM ARROW [Suspect]
     Active Substance: BROMAZEPAM
     Indication: ANXIETY
     Dosage: 1.5 DF, DAILY
     Route: 064
  34. BROMAZEPAM ARROW [Suspect]
     Active Substance: BROMAZEPAM
     Indication: FOETAL EXPOSURE DURING PREGNANCY
     Dosage: ONE AND A HALF DOSAGE PER DAY (1)
     Route: 064
  35. OMEPRAZOLE. [Suspect]
     Active Substance: OMEPRAZOLE
     Indication: GASTROOESOPHAGEAL REFLUX DISEASE
     Dosage: (MATERNAL DOSE: UNKNOWN) ()
     Route: 064
     Dates: start: 20140920
  36. ANAFRANIL [Suspect]
     Active Substance: CLOMIPRAMINE HYDROCHLORIDE
     Indication: DEPRESSION
     Dosage: 2 DF, DAILY
     Route: 064
  37. NECYRANE [Suspect]
     Active Substance: RITIOMETAN
     Indication: NASOPHARYNGITIS
     Dosage: MATERNAL DOSE: UNKNOWN) ()
     Route: 064
     Dates: start: 20140825

REACTIONS (8)
  - Pneumonia aspiration [Unknown]
  - Premature baby [Recovered/Resolved]
  - Fungal infection [Unknown]
  - Oral fungal infection [Unknown]
  - Foetal exposure during pregnancy [Unknown]
  - Death [Fatal]
  - Arrhythmia [Unknown]
  - Electrocardiogram ST segment elevation [Unknown]

NARRATIVE: CASE EVENT DATE: 20150105
